FAERS Safety Report 8886136 (Version 1)
Quarter: 2012Q4

REPORT INFORMATION
  Report Type: 
  Country: BR (occurrence: BR)
  Receive Date: 20121105
  Receipt Date: 20121105
  Transmission Date: 20130627
  Serious: Yes (Hospitalization)
  Sender: FDA-Public Use
  Company Number: BR-ASTRAZENECA-2012SE82176

PATIENT
  Age: 58 Year
  Sex: Female
  Weight: 66 kg

DRUGS (4)
  1. VANNAIR [Suspect]
     Indication: ASTHMA
     Dosage: 160/4.5MCG TWO TIMES A DAY
     Route: 055
     Dates: start: 20120430
  2. SELOZOK [Suspect]
     Indication: HYPERTENSION
     Route: 048
     Dates: start: 201205, end: 201207
  3. SELOZOK [Suspect]
     Indication: HYPERTENSION
     Route: 048
  4. CRESTOR [Suspect]
     Indication: BLOOD CHOLESTEROL INCREASED
     Route: 048
     Dates: start: 201207

REACTIONS (4)
  - Myocardial infarction [Recovered/Resolved]
  - Blood cholesterol increased [Unknown]
  - Anxiety [Not Recovered/Not Resolved]
  - Drug ineffective [Unknown]
